FAERS Safety Report 9899273 (Version 2)
Quarter: 2014Q1

REPORT INFORMATION
  Report Type: Report from Study
  Country: ES (occurrence: ES)
  Receive Date: 20140214
  Receipt Date: 20140214
  Transmission Date: 20141002
  Serious: Yes (Death, Life-Threatening, Hospitalization, Other)
  Sender: FDA-Public Use
  Company Number: ES-SA-CLOF-1001857

PATIENT
  Age: 75 Year
  Sex: Female
  Weight: 64 kg

DRUGS (4)
  1. CLOFARABINE [Suspect]
     Indication: ACUTE MYELOID LEUKAEMIA
     Dosage: 32.4 MG, UNK
     Route: 042
     Dates: start: 20111003, end: 20111007
  2. CYTARABINE [Suspect]
     Indication: ACUTE MYELOID LEUKAEMIA
     Dosage: 32.4 MG, UNK
     Route: 059
     Dates: start: 20111003, end: 20111016
  3. DIGOXIN [Concomitant]
     Dosage: UNK
  4. WARFARIN SODIUM [Concomitant]
     Dosage: UNK

REACTIONS (7)
  - Haemoptysis [Fatal]
  - Central nervous system lesion [Not Recovered/Not Resolved]
  - Haemoptysis [Recovered/Resolved]
  - Fungal infection [Fatal]
  - Febrile neutropenia [Recovered/Resolved]
  - Central nervous system infection [Fatal]
  - Bronchopulmonary aspergillosis [Fatal]
